FAERS Safety Report 24080416 (Version 3)
Quarter: 2024Q3

REPORT INFORMATION
  Report Type: Spontaneous
  Country: US (occurrence: US)
  Receive Date: 20240711
  Receipt Date: 20240813
  Transmission Date: 20241016
  Serious: Yes (Life-Threatening, Hospitalization, Other)
  Sender: FRESENIUS KABI
  Company Number: US-FreseniusKabi-FK202410538

PATIENT
  Age: 68 Year
  Sex: Female

DRUGS (3)
  1. FLUDARABINE [Suspect]
     Active Substance: FLUDARABINE PHOSPHATE
     Indication: Chemotherapy
     Dosage: FORM OF ADMINISTRATION: INFUSION
     Route: 042
     Dates: start: 20240605, end: 20240609
  2. CYCLOPHOSPHAMIDE [Suspect]
     Active Substance: CYCLOPHOSPHAMIDE
     Indication: Chemotherapy
     Dosage: FORM OF ADMIN: INFUSION
     Route: 042
     Dates: start: 20240603, end: 20240604
  3. CB-010 [Suspect]
     Active Substance: CB-010
     Indication: B-cell lymphoma
     Dosage: 80 X 10^6 VIABLE CAR-T CELLS, SINGLE
     Route: 042
     Dates: start: 20240612, end: 20240612

REACTIONS (3)
  - Upper gastrointestinal haemorrhage [Recovered/Resolved]
  - Subdural haematoma [Recovering/Resolving]
  - Constipation [Unknown]

NARRATIVE: CASE EVENT DATE: 20240617
